FAERS Safety Report 12547627 (Version 1)
Quarter: 2016Q3

REPORT INFORMATION
  Report Type: Report from Study
  Country: US (occurrence: US)
  Receive Date: 20160712
  Receipt Date: 20160712
  Transmission Date: 20161109
  Serious: Yes (Other)
  Sender: FDA-Public Use
  Company Number: US-AMGEN-USASL2016070693

PATIENT
  Age: 66 Year

DRUGS (1)
  1. KYPROLIS [Suspect]
     Active Substance: CARFILZOMIB
     Indication: PRODUCT USED FOR UNKNOWN INDICATION
     Dosage: UNK
     Route: 065
     Dates: end: 201606

REACTIONS (5)
  - Full blood count decreased [Unknown]
  - Muscle strain [Unknown]
  - Pleural effusion [Unknown]
  - Platelet count decreased [Unknown]
  - Thrombosis [Unknown]
